FAERS Safety Report 17136481 (Version 1)
Quarter: 2019Q4

REPORT INFORMATION
  Report Type: Spontaneous
  Country: US (occurrence: US)
  Receive Date: 20191210
  Receipt Date: 20191210
  Transmission Date: 20200122
  Serious: No
  Sender: FDA-Public Use
  Company Number: US-SA-2019SA338162

PATIENT
  Age: 76 Year
  Sex: Male

DRUGS (1)
  1. LANTUS [Suspect]
     Active Substance: INSULIN GLARGINE
     Indication: TYPE 2 DIABETES MELLITUS
     Dosage: 32UNITS IN THE EVENING
     Route: 065
     Dates: start: 201008

REACTIONS (3)
  - Injection site injury [Unknown]
  - Device defective [Unknown]
  - Wrong technique in device usage process [Unknown]
